FAERS Safety Report 14002608 (Version 1)
Quarter: 2017Q3

REPORT INFORMATION
  Report Type: Spontaneous
  Country: US (occurrence: US)
  Receive Date: 20170922
  Receipt Date: 20170922
  Transmission Date: 20171128
  Serious: No
  Sender: FDA-Public Use
  Company Number: US-AMGEN-USASP2016177834

PATIENT
  Age: 62 Year
  Sex: Male

DRUGS (1)
  1. NEUPOGEN [Suspect]
     Active Substance: FILGRASTIM
     Indication: NEUTROPENIA
     Dosage: 150 MCG, TWICE A WEEK
     Route: 065
     Dates: start: 1990

REACTIONS (2)
  - Expired product administered [Not Recovered/Not Resolved]
  - Mouth ulceration [Recovered/Resolved]
